FAERS Safety Report 16201752 (Version 1)
Quarter: 2019Q2

REPORT INFORMATION
  Report Type: Spontaneous
  Country: US (occurrence: US)
  Receive Date: 20190415
  Receipt Date: 20190415
  Transmission Date: 20190711
  Serious: Yes (Death)
  Sender: FDA-Public Use
  Company Number: None

PATIENT
  Age: 70 Year
  Sex: Male
  Weight: 106.42 kg

DRUGS (22)
  1. AMLODIPINE [Concomitant]
     Active Substance: AMLODIPINE BESYLATE
  2. JARDIANCE [Concomitant]
     Active Substance: EMPAGLIFLOZIN
  3. LANTUS SOLOSTAR [Concomitant]
     Active Substance: INSULIN GLARGINE
  4. LEVOTHYROXINE. [Concomitant]
     Active Substance: LEVOTHYROXINE
  5. AMITIZA [Concomitant]
     Active Substance: LUBIPROSTONE
  6. CHLORHEXIDINE [Concomitant]
     Active Substance: CHLORHEXIDINE
  7. CLARITIN [Concomitant]
     Active Substance: LORATADINE
  8. COLACE [Concomitant]
     Active Substance: DOCUSATE SODIUM
  9. HUMALOG [Concomitant]
     Active Substance: INSULIN LISPRO
  10. KETOCONAZOLE. [Concomitant]
     Active Substance: KETOCONAZOLE
  11. LOSARTAN. [Concomitant]
     Active Substance: LOSARTAN
  12. LORAZEPAM. [Concomitant]
     Active Substance: LORAZEPAM
  13. CARVEDILOL. [Concomitant]
     Active Substance: CARVEDILOL
  14. ESCITALOPRAM [Concomitant]
     Active Substance: ESCITALOPRAM OXALATE
  15. FLUOROURACIL. [Concomitant]
     Active Substance: FLUOROURACIL
  16. KLOR-CON10 [Concomitant]
  17. CAPECITABINE. [Suspect]
     Active Substance: CAPECITABINE
     Indication: HEPATIC CANCER
     Route: 048
     Dates: start: 20190226, end: 20190413
  18. MAGNESIUM OXIDE. [Concomitant]
     Active Substance: MAGNESIUM OXIDE
  19. CENTRUM [Concomitant]
     Active Substance: VITAMINS
  20. LASIX [Concomitant]
     Active Substance: FUROSEMIDE
  21. ALBUTEROL. [Concomitant]
     Active Substance: ALBUTEROL
  22. BACLOFEN. [Concomitant]
     Active Substance: BACLOFEN

REACTIONS (1)
  - Death [None]

NARRATIVE: CASE EVENT DATE: 20190413
